FAERS Safety Report 19072401 (Version 1)
Quarter: 2021Q1

REPORT INFORMATION
  Report Type: Spontaneous
  Country: US (occurrence: US)
  Receive Date: 20210330
  Receipt Date: 20210330
  Transmission Date: 20210420
  Serious: No
  Sender: FDA-Public Use
  Company Number: US-BAYER-2021-114087

PATIENT
  Age: 41 Year
  Sex: Female

DRUGS (1)
  1. GADAVIST [Suspect]
     Active Substance: GADOBUTROL
     Indication: IMAGING PROCEDURE
     Dosage: 6 ML, ONCE
     Route: 042
     Dates: start: 20210326

REACTIONS (4)
  - Nausea [None]
  - Blood pressure decreased [None]
  - Presyncope [None]
  - Vomiting [None]

NARRATIVE: CASE EVENT DATE: 20210326
